FAERS Safety Report 7643581-7 (Version None)
Quarter: 2011Q3

REPORT INFORMATION
  Report Type: 
  Country: None (occurrence: None)
  Receive Date: 20110722
  Receipt Date: 20110706
  Transmission Date: 20111222
  Serious: Yes (Hospitalization, Other)
  Sender: FDA-Public Use
  Company Number: 2011MA008430

PATIENT
  Age: 4 Year
  Sex: Male

DRUGS (1)
  1. PAREGORIC LIQUID USP (ALPHARMA) [Suspect]
     Indication: PAIN
     Dosage: IV
     Route: 042

REACTIONS (4)
  - BRADYPNOEA [None]
  - HYPOXIA [None]
  - PANCREATITIS [None]
  - GRAND MAL CONVULSION [None]
